FAERS Safety Report 9452293 (Version 1)
Quarter: 2013Q3

REPORT INFORMATION
  Report Type: Spontaneous
  Country: US (occurrence: None)
  Receive Date: 20130808
  Receipt Date: 20130808
  Transmission Date: 20140515
  Serious: Yes (Other)
  Sender: FDA-Public Use
  Company Number: None

PATIENT
  Age: 54 Year
  Sex: Female
  Weight: 68.04 kg

DRUGS (11)
  1. HYDROCHLOROTHIAZIDE\TRIAMTERENE [Suspect]
     Indication: BLOOD PRESSURE
     Dosage: ONCE A DAY  BY MOUTH
     Route: 048
     Dates: start: 2007, end: 201211
  2. TOPROL XL [Concomitant]
  3. NEDFINIPINE [Concomitant]
  4. HYDROCHLOROTHIAZIDE [Concomitant]
  5. LISINOPRIL [Concomitant]
  6. CYCLOBENZAPRINE [Concomitant]
  7. CITALOPRAM HBR [Concomitant]
  8. CLONAZEPAM [Concomitant]
  9. GEODON [Concomitant]
  10. NIFEDIAC CC [Concomitant]
  11. CENTRAL FOR WOMEN [Concomitant]

REACTIONS (2)
  - Protein urine present [None]
  - Blood cholesterol increased [None]
